FAERS Safety Report 7304267-1 (Version None)
Quarter: 2011Q1

REPORT INFORMATION
  Report Type: 
  Country: None (occurrence: None)
  Receive Date: 20110221
  Receipt Date: 20110209
  Transmission Date: 20110831
  Serious: Yes (Hospitalization)
  Sender: FDA-Public Use
  Company Number: PHHO2010US12110

PATIENT
  Sex: Male
  Weight: 123.36 kg

DRUGS (38)
  1. ENALAPRIL MALEATE [Suspect]
     Dosage: CODE NOT BROKEN
     Route: 048
     Dates: start: 20100518, end: 20100723
  2. BLINDED ALISKIREN [Suspect]
     Dosage: CODE NOT BROKEN
     Route: 048
     Dates: start: 20100729
  3. TORSEMIDE [Concomitant]
  4. SPIRONOLACTONE [Concomitant]
  5. CRESTOR [Concomitant]
  6. XYLOCAINE [Concomitant]
  7. ISOSORBIDE DINITRATE [Concomitant]
  8. CARVEDILOL [Concomitant]
  9. CAPTOPRIL [Concomitant]
  10. SODIUM CHLORIDE [Concomitant]
  11. ACETAMINOPHEN [Concomitant]
  12. BLINDED ALISKIREN [Suspect]
     Dosage: CODE NOT BROKEN
     Route: 048
     Dates: start: 20100518, end: 20100723
  13. COUMADIN [Concomitant]
  14. NIASPAN [Concomitant]
  15. HYDRALAZINE [Concomitant]
  16. BLINDED ALISKIREN [Suspect]
     Dosage: NO TREATMENT
     Dates: start: 20100724, end: 20100728
  17. BLINDED NO TREATMENT RECEIVED [Suspect]
     Dosage: NO TREATMENT
     Dates: start: 20100724, end: 20100728
  18. ENALAPRIL MALEATE [Suspect]
     Indication: CARDIAC FAILURE
  19. AMIODARONE [Concomitant]
  20. LASIX [Concomitant]
  21. ZAROXOLYN [Concomitant]
  22. DEMADEX [Concomitant]
  23. MUCOMYST [Concomitant]
  24. BLINDED NO TREATMENT RECEIVED [Suspect]
     Dosage: CODE NOT BROKEN
     Route: 048
     Dates: start: 20100518, end: 20100723
  25. ENALAPRIL MALEATE [Suspect]
     Dosage: NO TREATMENT
     Dates: start: 20100724, end: 20100728
  26. BLINDED NO TREATMENT RECEIVED [Suspect]
     Dosage: CODE NOT BROKEN
     Route: 048
     Dates: start: 20100729
  27. KLOR-CON [Concomitant]
  28. WARFARIN SODIUM [Concomitant]
  29. HEPARIN [Concomitant]
  30. ENALAPRIL MALEATE [Suspect]
     Dosage: CODE NOT BROKEN
     Route: 048
     Dates: start: 20100729
  31. VITAMIN D [Concomitant]
  32. FISH OIL [Concomitant]
  33. METOLAZONE [Concomitant]
  34. NOVOLIN R [Concomitant]
  35. ONDANSERTRON HCL [Concomitant]
  36. ALISKIREN [Suspect]
     Indication: CARDIAC FAILURE
  37. ASA [Concomitant]
  38. ASPIRIN [Concomitant]

REACTIONS (14)
  - BUNDLE BRANCH BLOCK LEFT [None]
  - ATRIAL FIBRILLATION [None]
  - CONCOMITANT DISEASE PROGRESSION [None]
  - BLOOD CREATININE INCREASED [None]
  - CARDIAC FAILURE [None]
  - CORONARY ARTERY DISEASE [None]
  - DISEASE PROGRESSION [None]
  - EJECTION FRACTION DECREASED [None]
  - ATRIAL FLUTTER [None]
  - CONDITION AGGRAVATED [None]
  - DYSPNOEA [None]
  - CHEST PAIN [None]
  - CATHETERISATION CARDIAC [None]
  - BLOOD POTASSIUM INCREASED [None]
